FAERS Safety Report 7214823-7 (Version None)
Quarter: 2011Q1

REPORT INFORMATION
  Report Type: 
  Country: None (occurrence: None)
  Receive Date: 20110107
  Receipt Date: 20100316
  Transmission Date: 20110831
  Serious: Yes (Hospitalization, Other)
  Sender: FDA-Public Use
  Company Number: A0850476A

PATIENT
  Age: 56 Year
  Sex: Male

DRUGS (1)
  1. LOVAZA [Suspect]
     Dosage: 4CAP PER DAY
     Route: 048
     Dates: start: 20100201

REACTIONS (1)
  - PANCREATITIS ACUTE [None]
